FAERS Safety Report 4796208-6 (Version None)
Quarter: 2005Q4

REPORT INFORMATION
  Report Type: 
  Country: None (occurrence: None)
  Receive Date: 20051007
  Receipt Date: 20050922
  Transmission Date: 20060501
  Serious: Yes (Death)
  Sender: FDA-Public Use
  Company Number: P200500019

PATIENT
  Age: 87 Year
  Sex: Male
  Weight: 63 kg

DRUGS (17)
  1. PLENAXIS [Suspect]
     Indication: PROSTATE CANCER
     Dosage: 100 MG, SINGLE, INTRAMUSCULAR
     Route: 030
     Dates: start: 20050413, end: 20050413
  2. PLENAXIS [Suspect]
     Indication: PROSTATE CANCER
     Dosage: 100 MG, SINGLE, INTRAMUSCULAR
     Route: 030
     Dates: start: 20050429, end: 20050429
  3. PROMETHAZINE HCL [Concomitant]
  4. B-12 LATINO DEPOT (CYANOCOBALAMIN-TANNIN COMPLEX) [Concomitant]
  5. RED BLOOD CELLS [Concomitant]
  6. BENADRYL ^PFIZER WARNER-LAMBERT^ (DIPHENHYDRAMINE HYDROCHLORIDE) [Concomitant]
  7. TAGAMET [Concomitant]
  8. SOLU-MEDROL [Concomitant]
  9. NEXIUM [Concomitant]
  10. PROCRIT [Concomitant]
  11. THYROID TAB [Concomitant]
  12. PAXIL [Concomitant]
  13. CORTEF [Concomitant]
  14. GERITOL (VITAMINS NOS) [Concomitant]
  15. AMIODARONE HCL [Concomitant]
  16. LACTULOSE [Concomitant]
  17. PATANOL [Concomitant]

REACTIONS (5)
  - ANAEMIA [None]
  - DISEASE PROGRESSION [None]
  - METASTASES TO BONE [None]
  - MYOCARDIAL INFARCTION [None]
  - PROSTATE CANCER [None]
